FAERS Safety Report 24004511 (Version 1)
Quarter: 2024Q2

REPORT INFORMATION
  Report Type: Spontaneous
  Country: IN (occurrence: IN)
  Receive Date: 20240624
  Receipt Date: 20240624
  Transmission Date: 20240717
  Serious: Yes (Hospitalization)
  Sender: FDA-Public Use
  Company Number: IN-PDX-000354

PATIENT
  Age: 9 Year
  Sex: Male

DRUGS (10)
  1. LEVETIRACETAM [Suspect]
     Active Substance: LEVETIRACETAM
     Indication: Generalised tonic-clonic seizure
     Route: 065
  2. VALPROATE [Suspect]
     Active Substance: VALPROIC ACID
     Indication: Generalised tonic-clonic seizure
     Route: 065
  3. RISPERIDONE [Suspect]
     Active Substance: RISPERIDONE
     Indication: Psychomotor hyperactivity
     Route: 065
  4. PHENYTOIN [Concomitant]
     Active Substance: PHENYTOIN
     Indication: Generalised tonic-clonic seizure
     Route: 065
  5. CARBAMAZEPINE [Concomitant]
     Active Substance: CARBAMAZEPINE
     Indication: Generalised tonic-clonic seizure
     Route: 065
  6. CLOBAZAM [Concomitant]
     Active Substance: CLOBAZAM
     Indication: Generalised tonic-clonic seizure
     Route: 065
  7. LACOSAMIDE [Concomitant]
     Active Substance: LACOSAMIDE
     Indication: Generalised tonic-clonic seizure
     Route: 065
  8. LEVETIRACETAM [Suspect]
     Active Substance: LEVETIRACETAM
     Indication: Generalised tonic-clonic seizure
     Dosage: INJECTABLE LOADING DOSES
     Route: 065
  9. VALPROATE [Suspect]
     Active Substance: VALPROIC ACID
     Indication: Generalised tonic-clonic seizure
     Dosage: INJECTABLE LOADING DOSES
     Route: 065
  10. PHENYTOIN [Concomitant]
     Active Substance: PHENYTOIN
     Indication: Generalised tonic-clonic seizure
     Dosage: INJECTABLE LOADING DOSES
     Route: 065

REACTIONS (2)
  - Therapeutic product effect incomplete [Unknown]
  - Product use issue [Unknown]
